FAERS Safety Report 7525474-9 (Version None)
Quarter: 2011Q2

REPORT INFORMATION
  Report Type: 
  Country: None (occurrence: None)
  Receive Date: 20110606
  Receipt Date: 20110526
  Transmission Date: 20111010
  Serious: Yes (Other)
  Sender: FDA-Public Use
  Company Number: CA-ROCHE-779602

PATIENT

DRUGS (1)
  1. AVASTIN [Suspect]
     Route: 031

REACTIONS (2)
  - DRY EYE [None]
  - ULCERATIVE KERATITIS [None]
